FAERS Safety Report 6788682-0 (Version None)
Quarter: 2010Q2

REPORT INFORMATION
  Report Type: 
  Country: None (occurrence: None)
  Receive Date: 20100623
  Receipt Date: 20080417
  Transmission Date: 20101027
  Serious: No
  Sender: FDA-Public Use
  Company Number: US-PFIZER INC-2008033927

PATIENT
  Sex: Male
  Weight: 59.09 kg

DRUGS (6)
  1. GEODON [Suspect]
     Indication: AGITATION
     Route: 030
     Dates: start: 20080102
  2. LISINOPRIL [Concomitant]
  3. EXELON [Concomitant]
  4. TAMSULOSIN HYDROCHLORIDE [Concomitant]
  5. AMBIEN [Concomitant]
  6. LACTULOSE [Concomitant]

REACTIONS (3)
  - CONFUSIONAL STATE [None]
  - DEPRESSED LEVEL OF CONSCIOUSNESS [None]
  - LETHARGY [None]
